FAERS Safety Report 8113491 (Version 2)
Quarter: 2013Q3

REPORT INFORMATION
  Report Type: Spontaneous
  Country: GB (occurrence: GB)
  Receive Date: 20110830
  Receipt Date: 20130821
  Transmission Date: 20140515
  Serious: Yes (Other)
  Sender: FDA-Public Use
  Company Number: PHHY2011GB75613

PATIENT
  Age: 35 Year
  Sex: Female

DRUGS (2)
  1. ACETYLSALICYLIC ACID [Suspect]
     Indication: THROMBOSIS PROPHYLAXIS
  2. CLOPIDOGREL [Suspect]
     Indication: THROMBOSIS PROPHYLAXIS

REACTIONS (4)
  - Thrombocytopenia [Recovered/Resolved]
  - Platelet function test abnormal [Recovered/Resolved]
  - Epistaxis [Recovered/Resolved]
  - Polycythaemia [Unknown]
